FAERS Safety Report 12013198 (Version 1)
Quarter: 2016Q1

REPORT INFORMATION
  Report Type: Report from Study
  Country: US (occurrence: US)
  Receive Date: 20160205
  Receipt Date: 20160205
  Transmission Date: 20160526
  Serious: Yes (Other)
  Sender: FDA-Public Use
  Company Number: US-BIOGEN-2014BI112298

PATIENT
  Sex: Female

DRUGS (1)
  1. TYSABRI [Suspect]
     Active Substance: NATALIZUMAB
     Indication: MULTIPLE SCLEROSIS
     Route: 042
     Dates: start: 20110829, end: 20160107

REACTIONS (9)
  - Deep vein thrombosis [Recovered/Resolved with Sequelae]
  - Multiple sclerosis [Unknown]
  - Lung neoplasm malignant [Recovered/Resolved]
  - Pneumonia [Recovered/Resolved]
  - Ligament sprain [Recovered/Resolved]
  - Foot fracture [Recovered/Resolved with Sequelae]
  - Lower limb fracture [Recovered/Resolved]
  - Migraine [Recovered/Resolved]
  - Multiple sclerosis relapse [Recovered/Resolved]

NARRATIVE: CASE EVENT DATE: 2014
